FAERS Safety Report 8839316 (Version 1)
Quarter: 2012Q4

REPORT INFORMATION
  Report Type: Spontaneous
  Country: US (occurrence: None)
  Receive Date: 20121011
  Receipt Date: 20121011
  Transmission Date: 20130627
  Serious: Yes (Other)
  Sender: FDA-Public Use
  Company Number: None

PATIENT
  Sex: Female
  Weight: 75.75 kg

DRUGS (1)
  1. HYDROXYCHLOROQUINE SULFATE [Suspect]
     Indication: PALINDROMIC RHEUMATISM
     Dosage: 200 mg, 2 tabs daily, oral
     Route: 048
     Dates: start: 201205, end: 201210

REACTIONS (4)
  - Palindromic rheumatism [None]
  - Condition aggravated [None]
  - Product substitution issue [None]
  - Product substitution issue [None]
